FAERS Safety Report 8282311-5 (Version None)
Quarter: 2012Q2

REPORT INFORMATION
  Report Type: 
  Country: None (occurrence: None)
  Receive Date: 20120413
  Receipt Date: 20120413
  Transmission Date: 20120825
  Serious: Yes (Hospitalization)
  Sender: FDA-Public Use
  Company Number: None

PATIENT
  Age: 67 Year
  Sex: Female
  Weight: 71 kg

DRUGS (2)
  1. TESSALON [Suspect]
     Indication: COUGH
     Dosage: 200.0 MG
     Route: 048
     Dates: start: 20120107, end: 20120111
  2. TESSALON [Suspect]
     Indication: UPPER RESPIRATORY TRACT INFECTION
     Dosage: 200.0 MG
     Route: 048
     Dates: start: 20120107, end: 20120111

REACTIONS (4)
  - HYPOTENSION [None]
  - CHEST PAIN [None]
  - VISUAL IMPAIRMENT [None]
  - HALLUCINATION [None]
